FAERS Safety Report 13636191 (Version 1)
Quarter: 2017Q2

REPORT INFORMATION
  Report Type: Spontaneous
  Country: None (occurrence: US)
  Receive Date: 20170609
  Receipt Date: 20170609
  Transmission Date: 20170830
  Serious: No
  Sender: FDA-Public Use
  Company Number: US-HETERO LABS LTD-2021731

PATIENT
  Age: 81 Year
  Sex: Female

DRUGS (3)
  1. DIALTRAZEN [Concomitant]
     Route: 065
  2. IRBESARTAN. [Suspect]
     Active Substance: IRBESARTAN
     Indication: PRODUCT USED FOR UNKNOWN INDICATION
     Route: 065
  3. UROCIT-K [Concomitant]
     Active Substance: POTASSIUM CITRATE
     Route: 065

REACTIONS (3)
  - Blood pressure increased [Unknown]
  - Drug ineffective [Unknown]
  - Chest pain [Unknown]
